FAERS Safety Report 6569397-0 (Version None)
Quarter: 2010Q1

REPORT INFORMATION
  Report Type: 
  Country: None (occurrence: None)
  Receive Date: 20100204
  Receipt Date: 20100126
  Transmission Date: 20100710
  Serious: Yes (Hospitalization)
  Sender: FDA-Public Use
  Company Number: DK-RANBAXY-2009RR-25812

PATIENT
  Sex: Female
  Weight: 60 kg

DRUGS (6)
  1. SIMVASTATIN [Suspect]
     Indication: HYPERCHOLESTEROLAEMIA
     Dosage: 40 MG, QD
     Route: 048
     Dates: start: 20050101, end: 20090508
  2. IOMERON-150 [Suspect]
     Indication: SCAN WITH CONTRAST
     Dosage: 85 ML, UNK
     Route: 042
     Dates: start: 20090422, end: 20090508
  3. FURIX RETARD [Concomitant]
     Indication: FLUID RETENTION
     Dosage: 60 MG, QD
     Route: 048
     Dates: start: 20030101
  4. ETALPHA [Concomitant]
     Indication: VITAMIN D DEFICIENCY
     Dosage: 0.5 MG, TID
     Route: 048
     Dates: start: 20080808
  5. FERRO DURETTER [Concomitant]
     Dosage: 100 MG, QD
     Route: 048
     Dates: start: 20070427
  6. RAMIPRIL [Concomitant]
     Indication: HYPERTENSION
     Dosage: 5 MG, QD
     Dates: start: 20070727

REACTIONS (3)
  - DIZZINESS [None]
  - DRUG INTERACTION [None]
  - RHABDOMYOLYSIS [None]
